FAERS Safety Report 24776151 (Version 1)
Quarter: 2024Q4

REPORT INFORMATION
  Report Type: Spontaneous
  Country: US (occurrence: US)
  Receive Date: 20241226
  Receipt Date: 20241226
  Transmission Date: 20250115
  Serious: Yes (Other)
  Sender: BRISTOL-MYERS SQUIBB COMPANY
  Company Number: US-CELGENE-USA-2016023662

PATIENT
  Age: 37 Year
  Sex: Male

DRUGS (10)
  1. ISTODAX [Suspect]
     Active Substance: ROMIDEPSIN
     Indication: Adult T-cell lymphoma/leukaemia
     Dosage: DAY 1, 8, 15 Q28 DAYS
     Route: 042
  2. ISTODAX [Suspect]
     Active Substance: ROMIDEPSIN
     Route: 042
  3. ETOPOSIDE [Concomitant]
     Active Substance: ETOPOSIDE
     Indication: Adult T-cell lymphoma/leukaemia
  4. PREDNISOLONE [Concomitant]
     Active Substance: PREDNISOLONE
     Indication: Adult T-cell lymphoma/leukaemia
  5. ONCOVIN [Concomitant]
     Active Substance: VINCRISTINE SULFATE
     Indication: Adult T-cell lymphoma/leukaemia
  6. CYCLOPHOSPHAMIDE [Concomitant]
     Active Substance: CYCLOPHOSPHAMIDE
     Indication: Adult T-cell lymphoma/leukaemia
  7. DOXORUBICIN [Concomitant]
     Active Substance: DOXORUBICIN
     Indication: Adult T-cell lymphoma/leukaemia
  8. CARBOPLATIN [Concomitant]
     Active Substance: CARBOPLATIN
     Indication: Adult T-cell lymphoma/leukaemia
  9. IFOSFAMIDE [Concomitant]
     Active Substance: IFOSFAMIDE
     Indication: Adult T-cell lymphoma/leukaemia
  10. METHOTREXATE [Concomitant]
     Active Substance: METHOTREXATE
     Indication: Adult T-cell lymphoma/leukaemia

REACTIONS (1)
  - Thrombocytopenia [Unknown]
